FAERS Safety Report 9038340 (Version 1)
Quarter: 2013Q1

REPORT INFORMATION
  Report Type: Report from Study
  Country: US (occurrence: US)
  Receive Date: 20130130
  Receipt Date: 20130130
  Transmission Date: 20140127
  Serious: No
  Sender: FDA-Public Use
  Company Number: US-ABBOTT-12P-163-0949483-00

PATIENT
  Age: 59 Year
  Sex: Female

DRUGS (6)
  1. HUMIRA 40 MG/0.8 ML PEN [Suspect]
     Indication: PSORIATIC ARTHROPATHY
     Dates: start: 200905
  2. ATENOLOL [Concomitant]
     Indication: HYPERTENSION
  3. ATENOLOL [Concomitant]
     Route: 048
  4. HYDROCHLORATHIAZIDE [Concomitant]
     Indication: HYPERTENSION
     Route: 048
  5. MELOXICAM [Concomitant]
     Indication: ARTHRITIS
     Route: 048
  6. OXYBUTYNIN [Concomitant]
     Indication: MICTURITION URGENCY
     Route: 048

REACTIONS (7)
  - Pyrexia [Not Recovered/Not Resolved]
  - Sinus congestion [Not Recovered/Not Resolved]
  - Bronchitis [Not Recovered/Not Resolved]
  - Nasal congestion [Not Recovered/Not Resolved]
  - Oropharyngeal pain [Not Recovered/Not Resolved]
  - Fatigue [Not Recovered/Not Resolved]
  - Headache [Not Recovered/Not Resolved]
